FAERS Safety Report 12678525 (Version 2)
Quarter: 2016Q3

REPORT INFORMATION
  Report Type: Spontaneous
  Country: DE (occurrence: DE)
  Receive Date: 20160823
  Receipt Date: 20160830
  Transmission Date: 20161109
  Serious: Yes (Disabling)
  Sender: FDA-Public Use
  Company Number: GXKR2015DE003512

PATIENT
  Age: 37 Year
  Sex: Male
  Weight: 73 kg

DRUGS (1)
  1. LEVOFLOXACIN - 1 A PHARMA [Suspect]
     Active Substance: LEVOFLOXACIN
     Indication: URINARY TRACT INFECTION
     Dosage: 500 MG, QD
     Route: 048
     Dates: start: 20150719, end: 20150720

REACTIONS (25)
  - Swelling [Not Recovered/Not Resolved]
  - Sleep disorder [Unknown]
  - Dysbacteriosis [Unknown]
  - Malaise [Unknown]
  - Immunodeficiency [Not Recovered/Not Resolved]
  - Erythema [Not Recovered/Not Resolved]
  - Visual impairment [Unknown]
  - Pallor [Unknown]
  - Tendon pain [Recovering/Resolving]
  - Tendon discomfort [Not Recovered/Not Resolved]
  - Tachycardia [Recovering/Resolving]
  - Vision blurred [Unknown]
  - Dry mouth [Unknown]
  - Walking disability [Recovering/Resolving]
  - Asthenia [Unknown]
  - Back pain [Not Recovered/Not Resolved]
  - Cystitis [Not Recovered/Not Resolved]
  - Tendonitis [Recovering/Resolving]
  - Joint crepitation [Not Recovered/Not Resolved]
  - Myalgia [Recovering/Resolving]
  - Anxiety [Recovering/Resolving]
  - Diarrhoea [Unknown]
  - Hyperhidrosis [Unknown]
  - Tinnitus [Not Recovered/Not Resolved]
  - Fatigue [Not Recovered/Not Resolved]

NARRATIVE: CASE EVENT DATE: 20150720
